FAERS Safety Report 7280679-X (Version None)
Quarter: 2011Q1

REPORT INFORMATION
  Report Type: 
  Country: None (occurrence: None)
  Receive Date: 20110208
  Receipt Date: 20110202
  Transmission Date: 20110831
  Serious: Yes (Other)
  Sender: FDA-Public Use
  Company Number: A0911440A

PATIENT
  Age: 63 Year
  Sex: Female

DRUGS (2)
  1. TYKERB [Suspect]
     Indication: BREAST CANCER
     Dosage: 1250MG PER DAY
     Route: 048
     Dates: start: 20091130
  2. FEMARA [Concomitant]
     Route: 065

REACTIONS (11)
  - EPISTAXIS [None]
  - NAIL BED BLEEDING [None]
  - DIARRHOEA [None]
  - LOCALISED INFECTION [None]
  - WEIGHT DECREASED [None]
  - VISUAL IMPAIRMENT [None]
  - VISUAL ACUITY REDUCED [None]
  - FATIGUE [None]
  - LOCAL SWELLING [None]
  - NAIL DISORDER [None]
  - EYE DISORDER [None]
